FAERS Safety Report 6458708-2 (Version None)
Quarter: 2009Q4

REPORT INFORMATION
  Report Type: 
  Country: None (occurrence: None)
  Receive Date: 20091127
  Receipt Date: 20091124
  Transmission Date: 20100525
  Serious: Yes (Life-Threatening)
  Sender: FDA-Public Use
  Company Number: TR-ROCHE-666421

PATIENT
  Age: 38 Year
  Sex: Male

DRUGS (3)
  1. NAIXAN [Suspect]
     Indication: TOOTH ABSCESS
     Route: 048
  2. AMOXICILLIN AND CLAVULANATE POTASSIUM [Suspect]
     Indication: TOOTH ABSCESS
     Route: 048
  3. PROPYLTHIOURACIL [Suspect]
     Indication: HYPERTHYROIDISM
     Route: 065

REACTIONS (1)
  - PURPURA FULMINANS [None]
